FAERS Safety Report 16210978 (Version 1)
Quarter: 2019Q2

REPORT INFORMATION
  Report Type: Spontaneous
  Country: GB (occurrence: GB)
  Receive Date: 20190418
  Receipt Date: 20190418
  Transmission Date: 20190711
  Serious: Yes (Other)
  Sender: FDA-Public Use
  Company Number: GB-ACCORD-122371

PATIENT
  Age: 42 Year
  Sex: Female
  Weight: 68 kg

DRUGS (6)
  1. AMOXICILLIN. [Concomitant]
     Active Substance: AMOXICILLIN
     Dates: start: 20181113
  2. NAPROXEN. [Concomitant]
     Active Substance: NAPROXEN
     Dosage: THREE TIMES A DAY WITH FOOD
     Dates: start: 20180912, end: 20180919
  3. AMITRIPTYLINE [Suspect]
     Active Substance: AMITRIPTYLINE
     Indication: PRODUCT USED FOR UNKNOWN INDICATION
     Dosage: AT NIGHT, ALSO RECEIVED 50 MG FROM 13-NOV-2018(TABLET)
     Dates: start: 20181025
  4. VENTOLIN [Concomitant]
     Active Substance: ALBUTEROL SULFATE
     Route: 055
     Dates: start: 20170926
  5. CETIRIZINE [Concomitant]
     Active Substance: CETIRIZINE HYDROCHLORIDE
     Indication: HYPERSENSITIVITY
     Dosage: DAILY
     Dates: start: 20180319
  6. PREDNISOLONE. [Concomitant]
     Active Substance: PREDNISOLONE
     Dosage: SIX TO BE TAKEN AS A SINGLE DOSE THE SAME TIME EACH DAY FOR 7 DAYS, THEN 3 DAILY FOR 7 DAYS
     Dates: start: 20170926

REACTIONS (1)
  - Anaphylactic reaction [Recovered/Resolved]

NARRATIVE: CASE EVENT DATE: 20181113
